FAERS Safety Report 12233916 (Version 2)
Quarter: 2016Q2

REPORT INFORMATION
  Report Type: Spontaneous
  Country: US (occurrence: US)
  Receive Date: 20160404
  Receipt Date: 20160413
  Transmission Date: 20160815
  Serious: Yes (Other)
  Sender: FDA-Public Use
  Company Number: US-AUROBINDO-AUR-APL-2016-04138

PATIENT
  Age: 58 Year
  Sex: Male

DRUGS (3)
  1. TRIHEXYPHENIDYL [Suspect]
     Active Substance: TRIHEXYPHENIDYL
     Indication: BIPOLAR DISORDER
     Dosage: 2 MG, DAILY
     Route: 065
  2. LITHIUM. [Suspect]
     Active Substance: LITHIUM
     Indication: BIPOLAR DISORDER
     Dosage: 300 MG, TWO TIMES A DAY
     Route: 065
  3. RISPERIDONE 3MG [Suspect]
     Active Substance: RISPERIDONE
     Indication: BIPOLAR DISORDER
     Dosage: 3 MG, TWO TIMES A DAY
     Route: 065

REACTIONS (13)
  - Condition aggravated [Recovered/Resolved]
  - Disorientation [Recovered/Resolved]
  - Somnolence [Recovered/Resolved]
  - Tremor [Not Recovered/Not Resolved]
  - Neurotoxicity [Recovered/Resolved]
  - Amnesia [Not Recovered/Not Resolved]
  - Confusional state [Recovered/Resolved]
  - Rectal haemorrhage [Recovered/Resolved]
  - Ataxia [Recovered/Resolved]
  - Dysarthria [Not Recovered/Not Resolved]
  - Restlessness [Recovered/Resolved]
  - Headache [Recovered/Resolved]
  - Muscular weakness [Not Recovered/Not Resolved]
